FAERS Safety Report 4862066-4 (Version None)
Quarter: 2005Q4

REPORT INFORMATION
  Report Type: 
  Country: None (occurrence: None)
  Receive Date: 20051201
  Receipt Date: 20050816
  Transmission Date: 20060501
  Serious: No
  Sender: FDA-Public Use
  Company Number: 2005PV001203

PATIENT
  Age: 58 Year
  Sex: Female
  Weight: 79.8331 kg

DRUGS (4)
  1. BYETTA [Suspect]
     Indication: DIABETES MELLITUS NON-INSULIN-DEPENDENT
     Dosage: 10 MCG;BID;SC
     Route: 058
     Dates: start: 20050601
  2. ALTACE [Concomitant]
  3. PROTONIX [Concomitant]
  4. ESTRACE [Concomitant]

REACTIONS (5)
  - ABDOMINAL DISTENSION [None]
  - DYSGEUSIA [None]
  - DYSPHAGIA [None]
  - FOOD CRAVING [None]
  - THERAPEUTIC RESPONSE UNEXPECTED [None]
